FAERS Safety Report 8937490 (Version 1)
Quarter: 2012Q4

REPORT INFORMATION
  Report Type: Spontaneous
  Country: GB (occurrence: None)
  Receive Date: 20121121
  Receipt Date: 20121121
  Transmission Date: 20130627
  Serious: Yes (Hospitalization)
  Sender: FDA-Public Use
  Company Number: 2012-003998

PATIENT
  Age: 65 Year
  Sex: Male

DRUGS (1)
  1. ASACOL HD (MESALAZINE) MODIFIED-RELEASE TABLET, 800MG [Suspect]
     Route: 048

REACTIONS (1)
  - Dysphagia [None]
